FAERS Safety Report 10916872 (Version 1)
Quarter: 2015Q1

REPORT INFORMATION
  Report Type: Spontaneous
  Country: US (occurrence: None)
  Receive Date: 20150312
  Receipt Date: 20150312
  Transmission Date: 20150721
  Serious: Yes (Disabling)
  Sender: FDA-Public Use
  Company Number: None

PATIENT
  Age: 64 Year
  Sex: Female
  Weight: 55.34 kg

DRUGS (7)
  1. RITALIN [Concomitant]
     Active Substance: METHYLPHENIDATE HYDROCHLORIDE
  2. LEVAQUIN [Suspect]
     Active Substance: LEVOFLOXACIN
     Indication: SINUSITIS
     Dosage: TAKEN BY MOUTH
     Dates: start: 20140205, end: 20140211
  3. MULTIVITAMIN [Concomitant]
     Active Substance: VITAMINS
  4. ULTRAM [Concomitant]
     Active Substance: TRAMADOL HYDROCHLORIDE
  5. AMBIEN [Concomitant]
     Active Substance: ZOLPIDEM TARTRATE
  6. LEVAQUIN [Suspect]
     Active Substance: LEVOFLOXACIN
     Indication: UPPER-AIRWAY COUGH SYNDROME
     Dosage: TAKEN BY MOUTH
     Dates: start: 20140205, end: 20140211
  7. ZINC [Concomitant]
     Active Substance: ZINC\ZINC CHLORIDE

REACTIONS (12)
  - Arthralgia [None]
  - Abasia [None]
  - Hypokinesia [None]
  - Impaired driving ability [None]
  - Impaired self-care [None]
  - Musculoskeletal pain [None]
  - Tendon pain [None]
  - Economic problem [None]
  - Exercise tolerance decreased [None]
  - Asthenia [None]
  - Pain in extremity [None]
  - Activities of daily living impaired [None]

NARRATIVE: CASE EVENT DATE: 20140214
